FAERS Safety Report 7790053-5 (Version None)
Quarter: 2011Q3

REPORT INFORMATION
  Report Type: 
  Country: None (occurrence: None)
  Receive Date: 20110930
  Receipt Date: 20110103
  Transmission Date: 20111222
  Serious: No
  Sender: FDA-Public Use
  Company Number: US-ASTRAZENECA-2011SE00482

PATIENT
  Age: 63 Year
  Sex: Female

DRUGS (1)
  1. ARIMIDEX [Suspect]
     Route: 048

REACTIONS (7)
  - SNEEZING [None]
  - MULTIPLE ALLERGIES [None]
  - DYSKINESIA [None]
  - WHEEZING [None]
  - TOOTH LOSS [None]
  - THERMAL BURN [None]
  - PAIN [None]
